FAERS Safety Report 16730402 (Version 1)
Quarter: 2019Q4

REPORT INFORMATION
  Report Type: Spontaneous
  Country: US (occurrence: US)
  Receive Date: 20190821
  Receipt Date: 20190821
  Transmission Date: 20200122
  Serious: Yes (Other)
  Sender: FDA-Public Use
  Company Number: None

PATIENT
  Age: 71 Year
  Sex: Female

DRUGS (1)
  1. TAXOL [Suspect]
     Active Substance: PACLITAXEL
     Indication: BREAST CANCER
     Dosage: ?          OTHER FREQUENCY:AS SCHEDULED;?
     Route: 041
     Dates: start: 20190820

REACTIONS (6)
  - Cough [None]
  - Infusion related reaction [None]
  - Hyperhidrosis [None]
  - Dyspnoea [None]
  - Restlessness [None]
  - Irritability [None]

NARRATIVE: CASE EVENT DATE: 20190820
